FAERS Safety Report 8528693-8 (Version None)
Quarter: 2012Q3

REPORT INFORMATION
  Report Type: 
  Country: None (occurrence: None)
  Receive Date: 20120723
  Receipt Date: 20120711
  Transmission Date: 20120928
  Serious: No
  Sender: FDA-Public Use
  Company Number: US-BIOGENIDEC-2012BI023766

PATIENT
  Age: 56 Year
  Sex: Female

DRUGS (3)
  1. AVONEX [Suspect]
     Indication: MULTIPLE SCLEROSIS
     Route: 030
     Dates: start: 19990501
  2. AVONEX [Suspect]
     Route: 030
     Dates: start: 20120601
  3. AVONEX [Suspect]
     Route: 030
     Dates: start: 20120601

REACTIONS (21)
  - INJECTION SITE HAEMORRHAGE [None]
  - LIMB INJURY [None]
  - INJECTION SITE ABSCESS [None]
  - FATIGUE [None]
  - INJECTION SITE REACTION [None]
  - FALL [None]
  - INCISION SITE INFECTION [None]
  - INCISION SITE COMPLICATION [None]
  - NECK PAIN [None]
  - SURGERY [None]
  - BALANCE DISORDER [None]
  - SCAR [None]
  - BACK PAIN [None]
  - LOSS OF CONSCIOUSNESS [None]
  - HEAD INJURY [None]
  - LIP INJURY [None]
  - LACERATION [None]
  - POST-TRAUMATIC NECK SYNDROME [None]
  - DRUG INTOLERANCE [None]
  - GENERAL SYMPTOM [None]
  - UNDERDOSE [None]
